FAERS Safety Report 16034203 (Version 1)
Quarter: 2019Q1

REPORT INFORMATION
  Report Type: Spontaneous
  Country: FR (occurrence: FR)
  Receive Date: 20190305
  Receipt Date: 20190305
  Transmission Date: 20190418
  Serious: Yes (Death)
  Sender: FDA-Public Use
  Company Number: FR-SUN PHARMACEUTICAL INDUSTRIES LTD-2019RR-200733

PATIENT
  Age: 83 Year
  Sex: Female
  Weight: 40 kg

DRUGS (10)
  1. SERESTA [Suspect]
     Active Substance: OXAZEPAM
     Indication: ANXIETY DISORDER
     Dosage: 10MG AU GOUTER + 50MG LE SOIR
     Route: 048
     Dates: end: 20181029
  2. ACLASTA [Suspect]
     Active Substance: ZOLEDRONIC ACID
     Indication: OSTEOPOROTIC FRACTURE
     Dosage: UNK
     Route: 042
     Dates: end: 20181029
  3. ULTRA LEVURE 200 MG, POUDRE POUR SUSPENSION BUVABLE EN SACHET [Suspect]
     Active Substance: SACCHAROMYCES CEREVISIAE
     Indication: DIARRHOEA
     Dosage: 1 DOSAGE FORM, DAILY
     Route: 048
     Dates: end: 20181029
  4. NEBIVOLOL. [Suspect]
     Active Substance: NEBIVOLOL
     Indication: HYPERTENSION
     Dosage: 1.25 MILLIGRAM, DAILY
     Route: 048
     Dates: end: 20181029
  5. PARACETAMOL [Suspect]
     Active Substance: ACETAMINOPHEN
     Indication: ARTHRALGIA
     Dosage: 3 GRAM, DAILY
     Route: 048
     Dates: end: 20181029
  6. ACIDE FOLIQUE [Suspect]
     Active Substance: FOLIC ACID
     Indication: ANAEMIA MACROCYTIC
     Dosage: 5 MILLIGRAM, WEEKLY
     Route: 048
     Dates: end: 20181029
  7. METOJECT [Suspect]
     Active Substance: METHOTREXATE SODIUM
     Indication: RHEUMATOID ARTHRITIS
     Dosage: 10 MILLIGRAM, WEEKLY
     Route: 058
     Dates: end: 20181011
  8. LEVOTHYROX 100 MICROGRAMMES, COMPRIME SECABLE [Suspect]
     Active Substance: LEVOTHYROXINE
     Indication: HYPOTHYROIDISM
     Dosage: UNK
     Route: 048
     Dates: end: 20181029
  9. IMOVANE [Suspect]
     Active Substance: ZOPICLONE
     Indication: INSOMNIA
     Dosage: 1 DOSAGE FORM, DAILY
     Route: 048
     Dates: end: 20181029
  10. FRAGMINE [Suspect]
     Active Substance: DALTEPARIN SODIUM
     Indication: THROMBOSIS PROPHYLAXIS
     Dosage: 1 DOSAGE FORM, DAILY
     Route: 058
     Dates: end: 20181029

REACTIONS (4)
  - Sudden death [Fatal]
  - Lung disorder [Fatal]
  - Femur fracture [Fatal]
  - Fall [Fatal]

NARRATIVE: CASE EVENT DATE: 20180920
